FAERS Safety Report 15854706 (Version 3)
Quarter: 2019Q1

REPORT INFORMATION
  Report Type: Spontaneous
  Country: AU (occurrence: AU)
  Receive Date: 20190122
  Receipt Date: 20190128
  Transmission Date: 20190417
  Serious: Yes (Other)
  Sender: FDA-Public Use
  Company Number: AU-PFIZER INC-2019012397

PATIENT
  Age: 40 Year
  Sex: Male
  Weight: 181 kg

DRUGS (6)
  1. CLOZAPINE. [Suspect]
     Active Substance: CLOZAPINE
     Dosage: UNK
     Dates: start: 20091118
  2. PALIPERIDONE. [Suspect]
     Active Substance: PALIPERIDONE
     Dosage: 100 MG, MONTHLY
  3. RAMIPRIL. [Suspect]
     Active Substance: RAMIPRIL
     Indication: HYPERTENSION
     Dosage: 2.5 MG, DAILY
  4. ATORVASTATIN PFIZER [Suspect]
     Active Substance: ATORVASTATIN
     Indication: DYSLIPIDAEMIA
     Dosage: 80 MG, DAILY
  5. CLOPINE [Suspect]
     Active Substance: CLOZAPINE
     Dosage: UNK
     Dates: start: 20110929
  6. CLOPINE [Suspect]
     Active Substance: CLOZAPINE
     Dosage: 300 MG, UNK

REACTIONS (11)
  - Aortic arteriosclerosis [Unknown]
  - QRS axis abnormal [Unknown]
  - Tricuspid valve incompetence [Unknown]
  - Aortic dilatation [Unknown]
  - Left ventricular dysfunction [Unknown]
  - Inferior vena cava dilatation [Unknown]
  - Pulmonary hypertension [Unknown]
  - Right atrial enlargement [Unknown]
  - Left ventricular enlargement [Unknown]
  - Right ventricular enlargement [Unknown]
  - Left atrial enlargement [Unknown]

NARRATIVE: CASE EVENT DATE: 20190109
